FAERS Safety Report 6816387-6 (Version None)
Quarter: 2010Q3

REPORT INFORMATION
  Report Type: 
  Country: None (occurrence: None)
  Receive Date: 20100705
  Receipt Date: 20100629
  Transmission Date: 20110219
  Serious: Yes (Death)
  Sender: FDA-Public Use
  Company Number: PHHY2010JP42995

PATIENT
  Sex: Male

DRUGS (5)
  1. TASIGNA [Suspect]
     Indication: CHRONIC MYELOID LEUKAEMIA
     Dosage: 800 MG, DAILY
     Route: 048
     Dates: start: 20090630, end: 20090706
  2. SPRYCEL [Suspect]
     Dosage: UNK
  3. PREDONINE [Concomitant]
     Indication: CHRONIC MYELOID LEUKAEMIA
     Dosage: 50 MG, UNK
     Route: 048
     Dates: start: 20090623, end: 20090721
  4. ONCOVIN [Concomitant]
     Indication: CHRONIC MYELOID LEUKAEMIA
     Dosage: 2 MG, UNK
     Route: 042
     Dates: start: 20090623
  5. ONCOVIN [Concomitant]
     Dosage: 2 MG, UNK
     Route: 042
     Dates: end: 20090714

REACTIONS (2)
  - DEATH [None]
  - RASH GENERALISED [None]
